FAERS Safety Report 14046089 (Version 3)
Quarter: 2018Q1

REPORT INFORMATION
  Report Type: Report from Study
  Country: AU (occurrence: AU)
  Receive Date: 20171005
  Receipt Date: 20180118
  Transmission Date: 20180508
  Serious: Yes (Hospitalization)
  Sender: FDA-Public Use
  Company Number: AU-JNJFOC-20171002390

PATIENT
  Age: 70 Year
  Sex: Male

DRUGS (1)
  1. SIMPONI [Suspect]
     Active Substance: GOLIMUMAB
     Indication: RHEUMATOID ARTHRITIS
     Route: 058

REACTIONS (3)
  - Wound [Recovering/Resolving]
  - Infection [Recovering/Resolving]
  - Medical induction of coma [Unknown]

NARRATIVE: CASE EVENT DATE: 20170925
